FAERS Safety Report 15312940 (Version 2)
Quarter: 2018Q3

REPORT INFORMATION
  Report Type: Report from Study
  Country: BR (occurrence: BR)
  Receive Date: 20180823
  Receipt Date: 20180905
  Transmission Date: 20181010
  Serious: Yes (Hospitalization, Other)
  Sender: FDA-Public Use
  Company Number: PHHY2018BR077754

PATIENT
  Age: 18 Year
  Sex: Female
  Weight: 55 kg

DRUGS (3)
  1. COMPLEX B [Concomitant]
     Active Substance: CALCIUM PANTOTHENATE\CYANOCOBALAMIN\NIACINAMIDE\PYRIDOXINE HYDROCHLORIDE\RIBOFLAVIN\THIAMINE MONONITRATE
     Indication: THALASSAEMIA BETA
     Dosage: UNK UNK, QD
     Route: 048
  2. EXJADE [Suspect]
     Active Substance: DEFERASIROX
     Indication: THALASSAEMIA BETA
     Dosage: 1500 MG, TID  (3 TABLETS A DAY)
     Route: 048
     Dates: start: 2011
  3. FOLATE [Concomitant]
     Active Substance: FOLATE SODIUM
     Indication: THALASSAEMIA BETA
     Dosage: UNK UNK, QD
     Route: 048

REACTIONS (21)
  - Mitral valve disease [Not Recovered/Not Resolved]
  - Multi-organ disorder [Not Recovered/Not Resolved]
  - Blood iron increased [Not Recovered/Not Resolved]
  - Loss of consciousness [Unknown]
  - Cardiac disorder [Not Recovered/Not Resolved]
  - Abdominal discomfort [Unknown]
  - Retching [Unknown]
  - Diabetic ketoacidosis [Recovered/Resolved]
  - Vomiting [Unknown]
  - Syncope [Unknown]
  - Dyspnoea [Not Recovered/Not Resolved]
  - Malaise [Not Recovered/Not Resolved]
  - Pain [Unknown]
  - Weight decreased [Unknown]
  - Confusional state [Unknown]
  - Serum ferritin increased [Unknown]
  - Swelling [Not Recovered/Not Resolved]
  - Diabetes mellitus [Not Recovered/Not Resolved]
  - Pancreatic disorder [Not Recovered/Not Resolved]
  - Thalassaemia beta [Not Recovered/Not Resolved]
  - Headache [Recovered/Resolved]

NARRATIVE: CASE EVENT DATE: 20180604
